FAERS Safety Report 12870034 (Version 2)
Quarter: 2016Q4

REPORT INFORMATION
  Report Type: Spontaneous
  Country: US (occurrence: US)
  Receive Date: 20161020
  Receipt Date: 20161110
  Transmission Date: 20170207
  Serious: Yes (Other)
  Sender: FDA-Public Use
  Company Number: US-GILEAD-2016-0238504

PATIENT
  Age: 58 Year
  Sex: Male
  Weight: 84.35 kg

DRUGS (7)
  1. ERGOCALCIFEROL. [Concomitant]
     Active Substance: ERGOCALCIFEROL
  2. TRIUMEQ [Concomitant]
     Active Substance: ABACAVIR SULFATE\DOLUTEGRAVIR SODIUM\LAMIVUDINE
  3. OXYCODONE [Concomitant]
     Active Substance: OXYCODONE
  4. HARVONI [Suspect]
     Active Substance: LEDIPASVIR\SOFOSBUVIR
     Indication: CHRONIC HEPATITIS C
     Dosage: 1 DF, QD
     Route: 065
     Dates: start: 20160401, end: 20160624
  5. LUNESTA [Concomitant]
     Active Substance: ESZOPICLONE
  6. VITAMIN B [Concomitant]
     Active Substance: VITAMIN B
  7. TESTOSTERONE CYPIONATE. [Concomitant]
     Active Substance: TESTOSTERONE CYPIONATE

REACTIONS (3)
  - Drug ineffective [Unknown]
  - Hepatitis C [Unknown]
  - Treatment failure [Unknown]

NARRATIVE: CASE EVENT DATE: 20160630
